FAERS Safety Report 7815015-0 (Version None)
Quarter: 2011Q4

REPORT INFORMATION
  Report Type: 
  Country: None (occurrence: None)
  Receive Date: 20111014
  Receipt Date: 20111007
  Transmission Date: 20120403
  Serious: Yes (Hospitalization)
  Sender: FDA-Public Use
  Company Number: KR-GLAXOSMITHKLINE-B0754710A

PATIENT
  Sex: Male
  Weight: 60 kg

DRUGS (8)
  1. MELPHALAN HYDROCHLORIDE [Suspect]
     Indication: MULTIPLE MYELOMA
     Dosage: 8MG PER DAY
     Route: 065
     Dates: start: 20101122
  2. THALIDOMIDE [Suspect]
     Indication: MULTIPLE MYELOMA
     Dosage: 200MG PER DAY
     Route: 048
     Dates: start: 20101122
  3. DIOVAN [Concomitant]
     Indication: HYPERTENSION
     Dosage: 80MG PER DAY
     Route: 048
     Dates: start: 20050901
  4. GLICLAZIDE [Concomitant]
     Indication: DIABETES MELLITUS
     Dosage: 800MG TWICE PER DAY
     Route: 048
     Dates: start: 20051001
  5. PREDNISONE [Suspect]
     Indication: MULTIPLE MYELOMA
     Dosage: 120MG PER DAY
     Route: 065
     Dates: start: 20101122
  6. AMARYL [Concomitant]
     Indication: DIABETES MELLITUS
     Dosage: 2MG PER DAY
     Route: 048
     Dates: start: 20050901
  7. MAGMIL [Concomitant]
     Indication: CONSTIPATION PROPHYLAXIS
     Dosage: 500MG PER DAY
     Route: 048
     Dates: start: 20101020
  8. ASPIRIN [Concomitant]
     Indication: THROMBOSIS PROPHYLAXIS
     Dosage: 100MG PER DAY
     Route: 048
     Dates: start: 20101215

REACTIONS (4)
  - FALL [None]
  - FATIGUE [None]
  - PAIN [None]
  - CONTUSION [None]
